FAERS Safety Report 8312567-1 (Version None)
Quarter: 2012Q2

REPORT INFORMATION
  Report Type: 
  Country: None (occurrence: None)
  Receive Date: 20120425
  Receipt Date: 20120425
  Transmission Date: 20120825
  Serious: Yes (Hospitalization, Disabling)
  Sender: FDA-Public Use
  Company Number: None

PATIENT
  Age: 60 Year
  Sex: Female
  Weight: 81.6475 kg

DRUGS (5)
  1. LISINOPRIL [Concomitant]
  2. ATENOLOL [Concomitant]
  3. LASIX [Concomitant]
  4. AMITRIPTYLINE HCL [Concomitant]
  5. ALLOPURINOL [Suspect]
     Indication: BLOOD URIC ACID INCREASED
     Dosage: 1 PILL ONCE A DAY 047
     Route: 048
     Dates: start: 20110801, end: 20110901

REACTIONS (13)
  - PYREXIA [None]
  - SCAR [None]
  - ALOPECIA [None]
  - CHILLS [None]
  - VISUAL IMPAIRMENT [None]
  - ORAL PAIN [None]
  - OROPHARYNGEAL PAIN [None]
  - EYE IRRITATION [None]
  - OCULAR HYPERAEMIA [None]
  - STEVENS-JOHNSON SYNDROME [None]
  - DRUG HYPERSENSITIVITY [None]
  - DRUG EFFECT DECREASED [None]
  - IMMUNE SYSTEM DISORDER [None]
